FAERS Safety Report 7417764-5 (Version None)
Quarter: 2011Q2

REPORT INFORMATION
  Report Type: 
  Country: None (occurrence: None)
  Receive Date: 20110415
  Receipt Date: 20110408
  Transmission Date: 20111010
  Serious: Yes (Hospitalization)
  Sender: FDA-Public Use
  Company Number: FR-PFIZER INC-2011077620

PATIENT
  Age: 57 Year
  Sex: Male

DRUGS (8)
  1. AUGMENTIN [Concomitant]
     Indication: HYPERTHERMIA
     Dosage: UNK
     Dates: start: 20101229, end: 20110102
  2. TRIFLUCAN [Suspect]
     Dosage: UNK
     Dates: start: 20110105, end: 20110111
  3. AOTAL [Concomitant]
     Dosage: 6 DF PER DAY
     Dates: start: 20100601
  4. TAZOCILLINE [Suspect]
     Dosage: UNK
     Dates: start: 20110105, end: 20110111
  5. KALEORID [Concomitant]
     Dosage: 3 DF PER DAY
  6. LASIX [Concomitant]
     Dosage: 80 MG/DAY
  7. TARDYFERON [Concomitant]
     Dosage: 2 DF PER DAY
  8. CLAFORAN [Concomitant]
     Indication: HYPERTHERMIA
     Dosage: UNK
     Dates: start: 20110102, end: 20110105

REACTIONS (1)
  - CONFUSIONAL STATE [None]
